FAERS Safety Report 15961995 (Version 1)
Quarter: 2019Q1

REPORT INFORMATION
  Report Type: Spontaneous
  Country: US (occurrence: US)
  Receive Date: 20190212
  Receipt Date: 20190212
  Transmission Date: 20190417
  Serious: No
  Sender: FDA-Public Use
  Company Number: None

PATIENT

DRUGS (1)
  1. MESALAMAINE 1.2GM [Suspect]
     Active Substance: MESALAMINE
     Indication: COLITIS ULCERATIVE
     Dosage: ?          QUANTITY:2 PILLS;OTHER FREQUENCY:ONCE IN MORNING;?
     Route: 048
     Dates: start: 20190119, end: 20190119

REACTIONS (6)
  - Chest pain [None]
  - Nausea [None]
  - Chills [None]
  - Pyrexia [None]
  - Fatigue [None]
  - Back pain [None]

NARRATIVE: CASE EVENT DATE: 20190121
